FAERS Safety Report 7464538-5 (Version None)
Quarter: 2011Q1

REPORT INFORMATION
  Report Type: 
  Country: None (occurrence: None)
  Receive Date: 20110302
  Receipt Date: 20101008
  Transmission Date: 20110831
  Serious: Yes (Hospitalization)
  Sender: FDA-Public Use
  Company Number: 163-21880-10100897

PATIENT
  Age: 69 Year
  Sex: Male

DRUGS (1)
  1. REVLIMID [Suspect]
     Indication: MULTIPLE MYELOMA
     Dosage: 15 MG, DAILY FOR 14 DAYS, THEN 7DAYS OFF, PR
     Dates: start: 20100909

REACTIONS (4)
  - RIB FRACTURE [None]
  - FALL [None]
  - BLOOD PRESSURE DECREASED [None]
  - PULMONARY HAEMORRHAGE [None]
